FAERS Safety Report 19368217 (Version 1)
Quarter: 2021Q2

REPORT INFORMATION
  Report Type: Spontaneous
  Country: MX (occurrence: MX)
  Receive Date: 20210603
  Receipt Date: 20210603
  Transmission Date: 20210717
  Serious: Yes (Death, Other)
  Sender: FDA-Public Use
  Company Number: MX-AMGEN-MEXSP2021080790

PATIENT

DRUGS (1)
  1. FILGRASTIM [Suspect]
     Active Substance: FILGRASTIM
     Indication: PROPHYLAXIS
     Dosage: 5 MICROGRAM/KILOGRAM, QD FOR 10 DAYS
     Route: 058

REACTIONS (28)
  - Septic shock [Unknown]
  - Hypomagnesaemia [Unknown]
  - Ocular hyperaemia [Unknown]
  - Tachycardia [Unknown]
  - Decreased appetite [Unknown]
  - Dizziness [Unknown]
  - Swelling [Unknown]
  - Dysuria [Unknown]
  - Diarrhoea [Unknown]
  - Fatigue [Unknown]
  - Death [Fatal]
  - Abdominal pain [Unknown]
  - Abdominal distension [Unknown]
  - Pruritus [Unknown]
  - Influenza like illness [Unknown]
  - Pallor [Unknown]
  - Vision blurred [Unknown]
  - Eye pain [Unknown]
  - Jaundice [Unknown]
  - Constipation [Unknown]
  - Rash [Unknown]
  - Febrile neutropenia [Unknown]
  - Dysphagia [Unknown]
  - Dermatitis bullous [Unknown]
  - Confusional state [Unknown]
  - Headache [Unknown]
  - Nausea [Unknown]
  - Vomiting [Unknown]
